FAERS Safety Report 5221661-3 (Version None)
Quarter: 2007Q1

REPORT INFORMATION
  Report Type: 
  Country: None (occurrence: None)
  Receive Date: 20070129
  Receipt Date: 20070124
  Transmission Date: 20070707
  Serious: Yes (Death, Hospitalization)
  Sender: FDA-Public Use
  Company Number: US-BRISTOL-MYERS SQUIBB COMPANY-13010343

PATIENT
  Age: 72 Year
  Sex: Female

DRUGS (3)
  1. CETUXIMAB [Suspect]
     Indication: NON-SMALL CELL LUNG CANCER
     Dosage: COURSE 1.  DOSE DELAYED OR OMITTED.
     Route: 042
     Dates: start: 20050615, end: 20050615
  2. CARBOPLATIN [Suspect]
     Indication: NON-SMALL CELL LUNG CANCER
     Route: 042
     Dates: start: 20050615, end: 20050615
  3. TAXOTERE [Suspect]
     Indication: NON-SMALL CELL LUNG CANCER
     Route: 042
     Dates: start: 20050615, end: 20050615

REACTIONS (5)
  - DEHYDRATION [None]
  - MUCOSAL INFLAMMATION [None]
  - ORTHOSTATIC HYPERTENSION [None]
  - SEPTIC SHOCK [None]
  - VOMITING [None]
